FAERS Safety Report 17099536 (Version 1)
Quarter: 2019Q4

REPORT INFORMATION
  Report Type: Spontaneous
  Country: US (occurrence: US)
  Receive Date: 20191202
  Receipt Date: 20191202
  Transmission Date: 20200122
  Serious: No
  Sender: FDA-Public Use
  Company Number: US-PFIZER INC-2019520943

PATIENT
  Age: 59 Year
  Sex: Female
  Weight: 136.5 kg

DRUGS (1)
  1. IBRANCE [Suspect]
     Active Substance: PALBOCICLIB
     Dosage: 125 MG, CYCLIC (THREE WEEKS ON, 1 WEEK OFF.)
     Route: 048

REACTIONS (2)
  - Neoplasm progression [Unknown]
  - White blood cell count decreased [Recovered/Resolved]
